FAERS Safety Report 15771226 (Version 1)
Quarter: 2018Q4

REPORT INFORMATION
  Report Type: Spontaneous
  Country: US (occurrence: US)
  Receive Date: 20181228
  Receipt Date: 20181228
  Transmission Date: 20190205
  Serious: No
  Sender: FDA-Public Use
  Company Number: None

PATIENT
  Age: 82 Year
  Sex: Female
  Weight: 81 kg

DRUGS (1)
  1. REPATHA 140 MG/SURECLICK 2PK [Suspect]
     Active Substance: EVOLOCUMAB
     Indication: HYPERCHOLESTEROLAEMIA
     Dosage: ?          QUANTITY:1 INJECTION(S);OTHER FREQUENCY:EVERY TWO WEEKS;OTHER ROUTE:THIGH?
     Dates: start: 20181128, end: 20181215

REACTIONS (8)
  - Diarrhoea [None]
  - Rhinorrhoea [None]
  - Feeling jittery [None]
  - Gastroenteritis [None]
  - Feeling abnormal [None]
  - Headache [None]
  - Myalgia [None]
  - Erythema [None]

NARRATIVE: CASE EVENT DATE: 20181216
